FAERS Safety Report 7367873-4 (Version None)
Quarter: 2011Q1

REPORT INFORMATION
  Report Type: 
  Country: None (occurrence: None)
  Receive Date: 20110322
  Receipt Date: 20110311
  Transmission Date: 20110831
  Serious: Yes (Hospitalization, Other)
  Sender: FDA-Public Use
  Company Number: US-SANOFI-AVENTIS-A03200701986

PATIENT
  Age: 65 Year
  Sex: Male
  Weight: 117 kg

DRUGS (42)
  1. PLAVIX [Suspect]
     Dosage: UNIT DOSE: 75 MG
     Route: 048
     Dates: start: 20010101, end: 20060816
  2. GLIPIZIDE [Concomitant]
  3. GLYCERYL TRINITRATE [Concomitant]
  4. FUROSEMIDE [Concomitant]
  5. DIGOXIN [Concomitant]
  6. LASIX [Concomitant]
  7. AVANDIA [Concomitant]
  8. VYTORIN [Concomitant]
  9. LEVOTHYROXINE SODIUM [Concomitant]
  10. COREG [Concomitant]
  11. ANDROGEL [Concomitant]
     Dosage: 6 PUMPS DAILY
  12. LANTUS [Concomitant]
  13. VITAMIN PREPARATION COMPOUND [Concomitant]
  14. CELEBREX [Concomitant]
  15. PLAVIX [Suspect]
     Route: 065
     Dates: start: 19991019
  16. PLAVIX [Suspect]
     Route: 065
     Dates: start: 19991019
  17. LASIX [Concomitant]
  18. OMEPRAZOLE [Concomitant]
  19. NYSTATIN [Concomitant]
  20. PLAVIX [Suspect]
     Dosage: UNIT DOSE: 75 MG
     Route: 048
     Dates: start: 20050101, end: 20060824
  21. MULTI-VITAMINS [Concomitant]
  22. COLCHICINE [Concomitant]
  23. AVINZA [Concomitant]
  24. NOVOLOG [Concomitant]
  25. CADUET COMBINATION [Concomitant]
     Dosage: 5/10 MG
  26. PLAVIX [Suspect]
     Dosage: UNIT DOSE: 75 MG
     Route: 048
     Dates: start: 20050101, end: 20060824
  27. DOCUSATE [Concomitant]
  28. WARFARIN [Concomitant]
  29. ALTACE [Concomitant]
  30. OXYCODONE HCL AND ACETAMINOPHEN [Concomitant]
  31. ALLOPURINOL [Concomitant]
  32. VITAMIN D [Concomitant]
  33. PROMETHAZINE [Concomitant]
  34. PLAVIX [Suspect]
     Indication: CORONARY ARTERY DISEASE
     Dosage: UNIT DOSE: 75 MG
     Route: 048
     Dates: start: 20010101, end: 20060816
  35. ASPIRIN [Suspect]
     Route: 065
     Dates: end: 20060816
  36. COZAAR [Concomitant]
  37. COZAAR [Concomitant]
  38. PREDNISONE [Concomitant]
  39. LEVOTHYROXINE SODIUM [Concomitant]
  40. LEVOTHYROXINE SODIUM [Concomitant]
  41. ATORVASTATIN CALCIUM [Concomitant]
  42. ESOMEPRAZOLE [Concomitant]

REACTIONS (15)
  - GAIT DISTURBANCE [None]
  - ABDOMINAL PAIN UPPER [None]
  - HYPOTENSION [None]
  - HAEMOGLOBIN DECREASED [None]
  - THROMBOTIC THROMBOCYTOPENIC PURPURA [None]
  - PLATELET COUNT DECREASED [None]
  - PYREXIA [None]
  - CARDIAC FAILURE CONGESTIVE [None]
  - DRUG HYPERSENSITIVITY [None]
  - SOMNOLENCE [None]
  - ANGINA PECTORIS [None]
  - DYSPNOEA EXERTIONAL [None]
  - MENTAL STATUS CHANGES [None]
  - DEEP VEIN THROMBOSIS [None]
  - RENAL FAILURE ACUTE [None]
